FAERS Safety Report 8619886-X (Version None)
Quarter: 2012Q3

REPORT INFORMATION
  Report Type: 
  Country: None (occurrence: None)
  Receive Date: 20120824
  Receipt Date: 20120820
  Transmission Date: 20120928
  Serious: Yes (Life-Threatening, Hospitalization)
  Sender: FDA-Public Use
  Company Number: US-CELGENEUS-163-21880-12072572

PATIENT
  Sex: Male
  Weight: 68.1 kg

DRUGS (5)
  1. VALTREX [Concomitant]
     Indication: HERPES ZOSTER
     Dosage: 500 MILLIGRAM
     Route: 048
  2. REVLIMID [Suspect]
     Dosage: ALTERNATE 15MG/10MG
     Route: 048
     Dates: start: 20100301
  3. NAPROXEN [Concomitant]
     Dosage: 1000 MILLIGRAM
     Route: 048
     Dates: start: 20090101
  4. SULFASALAZINE [Concomitant]
     Indication: RHEUMATOID ARTHRITIS
     Dosage: 1000 MILLIGRAM
     Route: 048
     Dates: start: 20120101
  5. REVLIMID [Suspect]
     Dosage: 10 MILLIGRAM
     Route: 048
     Dates: start: 20080401

REACTIONS (2)
  - LARGE INTESTINE PERFORATION [None]
  - DIARRHOEA [None]
